FAERS Safety Report 13259885 (Version 11)
Quarter: 2021Q3

REPORT INFORMATION
  Report Type: Spontaneous
  Country: US (occurrence: US)
  Receive Date: 20170222
  Receipt Date: 20210827
  Transmission Date: 20211014
  Serious: Yes (Hospitalization)
  Sender: FDA-Public Use
  Company Number: US-PFIZER INC-2017070855

PATIENT
  Age: 66 Year
  Sex: Male
  Weight: 90.72 kg

DRUGS (2)
  1. RAPAMUNE [Suspect]
     Active Substance: SIROLIMUS
     Dosage: 2 MG, 2X/DAY
     Route: 048
  2. RAPAMUNE [Suspect]
     Active Substance: SIROLIMUS
     Indication: PROPHYLAXIS AGAINST TRANSPLANT REJECTION
     Dosage: 2 MG, TAKE TWO TABLETS (2 MG) BY MOUTH DAILY^
     Route: 048

REACTIONS (6)
  - Pain [Unknown]
  - Diabetic ulcer [Unknown]
  - Off label use [Unknown]
  - Liver disorder [Unknown]
  - Weight increased [Unknown]
  - Product use in unapproved indication [Not Recovered/Not Resolved]
